FAERS Safety Report 8427710-3 (Version None)
Quarter: 2012Q2

REPORT INFORMATION
  Report Type: 
  Country: None (occurrence: None)
  Receive Date: 20120611
  Receipt Date: 20120531
  Transmission Date: 20120825
  Serious: Yes (Other)
  Sender: FDA-Public Use
  Company Number: US-ASTRAZENECA-2012SE36637

PATIENT
  Age: 51 Year
  Sex: Male
  Weight: 78.5 kg

DRUGS (15)
  1. SEROQUEL [Suspect]
     Indication: DEPRESSION
     Dosage: 50 MG IN THE MORNING AND 150 MG IN THE EVENING
     Route: 048
     Dates: start: 20070101
  2. SEROQUEL [Suspect]
     Route: 048
     Dates: start: 20070101
  3. HIGH BLOOD PRESSURE MEDICATION [Concomitant]
     Indication: HYPERTENSION
     Dosage: PRN
  4. SEROQUEL [Suspect]
     Indication: BIPOLAR DISORDER
     Dosage: 50 MG IN THE MORNING AND 150 MG IN THE EVENING
     Route: 048
     Dates: start: 20070101
  5. SEROQUEL [Suspect]
     Indication: ANXIETY
     Dosage: 50 MG IN THE MORNING AND 150 MG IN THE EVENING
     Route: 048
     Dates: start: 20070101
  6. SEROQUEL [Suspect]
     Indication: AFFECTIVE DISORDER
     Dosage: 50 MG IN THE MORNING AND 150 MG IN THE EVENING
     Route: 048
     Dates: start: 20070101
  7. LORAZEPAM [Concomitant]
     Indication: CONVULSION
  8. SEROQUEL [Suspect]
     Route: 048
     Dates: start: 20070101
  9. PROZAC [Concomitant]
     Dosage: PRN
  10. SEROQUEL [Suspect]
     Route: 048
     Dates: start: 20070101
  11. SEROQUEL [Suspect]
     Indication: SCHIZOPHRENIA
     Dosage: 50 MG IN THE MORNING AND 150 MG IN THE EVENING
     Route: 048
     Dates: start: 20070101
  12. SEROQUEL [Suspect]
     Route: 048
     Dates: start: 20070101
  13. SEROQUEL [Suspect]
     Indication: SLEEP DISORDER
     Dosage: 50 MG IN THE MORNING AND 150 MG IN THE EVENING
     Route: 048
     Dates: start: 20070101
  14. SEROQUEL [Suspect]
     Route: 048
     Dates: start: 20070101
  15. SEROQUEL [Suspect]
     Route: 048
     Dates: start: 20070101

REACTIONS (3)
  - CONVULSION [None]
  - APHAGIA [None]
  - INSOMNIA [None]
